FAERS Safety Report 13156738 (Version 1)
Quarter: 2017Q1

REPORT INFORMATION
  Report Type: Spontaneous
  Country: BR (occurrence: BR)
  Receive Date: 20170126
  Receipt Date: 20170126
  Transmission Date: 20170428
  Serious: Yes (Other)
  Sender: FDA-Public Use
  Company Number: BR-AMGEN-BRASP2008000543

PATIENT
  Sex: Female

DRUGS (6)
  1. CALCIUM CITRATE MALATE W/COLECALCIFEROL [Concomitant]
     Dosage: UNK
  2. PERMEAR [Concomitant]
     Dosage: UNK
     Dates: start: 2016
  3. TICLOPIDINE HYDROCHLORIDE. [Concomitant]
     Active Substance: TICLOPIDINE HYDROCHLORIDE
     Dosage: UNK
     Dates: start: 2014
  4. ENBREL [Suspect]
     Active Substance: ETANERCEPT
     Indication: RHEUMATIC DISORDER
     Dosage: UNK, ONCE WEEKLY
     Route: 065
     Dates: start: 2007
  5. SIMVASTATIN. [Concomitant]
     Active Substance: SIMVASTATIN
     Dosage: UNK
     Dates: start: 2016
  6. DIACEREIN [Concomitant]
     Active Substance: DIACEREIN
     Dosage: UNK
     Dates: start: 2016

REACTIONS (6)
  - Blood pressure fluctuation [Not Recovered/Not Resolved]
  - Osteoporosis [Unknown]
  - Asthenia [Recovered/Resolved]
  - Tremor [Recovered/Resolved]
  - Cardiac disorder [Unknown]
  - Hyperhidrosis [Recovered/Resolved]
